FAERS Safety Report 16788083 (Version 1)
Quarter: 2019Q3

REPORT INFORMATION
  Report Type: Report from Study
  Country: US (occurrence: US)
  Receive Date: 20190909
  Receipt Date: 20190909
  Transmission Date: 20191005
  Serious: Yes (Other)
  Sender: FDA-Public Use
  Company Number: US-TESAROUBC-2019-TSO01909-US

PATIENT
  Sex: Female

DRUGS (1)
  1. ZEJULA [Suspect]
     Active Substance: NIRAPARIB
     Indication: FALLOPIAN TUBE CANCER
     Dosage: 200MG, DAILY PM WITH FOOD
     Dates: start: 20190501

REACTIONS (12)
  - Weight decreased [Unknown]
  - Nephrolithiasis [Unknown]
  - Dehydration [Unknown]
  - Eye infection [Recovered/Resolved]
  - Carbohydrate antigen 125 increased [Unknown]
  - Fatigue [Unknown]
  - Blood creatinine decreased [Unknown]
  - Rash [Recovered/Resolved]
  - Positron emission tomogram abnormal [Unknown]
  - Hydronephrosis [Unknown]
  - Photosensitivity reaction [Unknown]
  - Nausea [Recovered/Resolved]
